FAERS Safety Report 5805286-4 (Version None)
Quarter: 2008Q3

REPORT INFORMATION
  Report Type: 
  Country: None (occurrence: None)
  Receive Date: 20080703
  Receipt Date: 20080623
  Transmission Date: 20090109
  Serious: Yes (Hospitalization)
  Sender: FDA-Public Use
  Company Number: 235708J08USA

PATIENT
  Age: 57 Year
  Sex: Male

DRUGS (7)
  1. REBIF [Suspect]
     Indication: MULTIPLE SCLEROSIS
     Dosage: 44 MCG, 3 IN 1 WEEKS, SUBCUTANEOUS
     Route: 058
     Dates: start: 20040513, end: 20070301
  2. ZOCOR [Concomitant]
  3. BACLOFEN [Concomitant]
  4. BENAZEPRIL HCL [Concomitant]
  5. ELAVIL [Concomitant]
  6. NEURONTIN [Concomitant]
  7. RELAFEN [Concomitant]

REACTIONS (4)
  - APPENDICITIS [None]
  - DRUG HYPERSENSITIVITY [None]
  - PYREXIA [None]
  - RASH [None]
